FAERS Safety Report 22053543 (Version 1)
Quarter: 2023Q1

REPORT INFORMATION
  Report Type: Spontaneous
  Country: US (occurrence: US)
  Receive Date: 20230302
  Receipt Date: 20230302
  Transmission Date: 20230418
  Serious: Yes (Other)
  Sender: FDA-Public Use
  Company Number: US-CHEPLA-2023002723

PATIENT
  Age: 8 Decade
  Sex: Female

DRUGS (3)
  1. HYDROXYUREA [Suspect]
     Active Substance: HYDROXYUREA
     Indication: Essential thrombocythaemia
     Dosage: CUMULATIVE DOSE OF APPROXIMATELY 2500 G
  2. HYDROXYUREA [Suspect]
     Active Substance: HYDROXYUREA
     Indication: Essential thrombocythaemia
     Dosage: EVERY-OTHER-DAY DOSING
  3. HYDROXYUREA [Suspect]
     Active Substance: HYDROXYUREA
     Indication: Essential thrombocythaemia
     Dosage: FULL-DOSE HYDROXYUREA WAS RESUMED

REACTIONS (3)
  - Squamous cell carcinoma of skin [Unknown]
  - Dysplasia [Unknown]
  - Transient ischaemic attack [Recovered/Resolved]
